FAERS Safety Report 17237204 (Version 1)
Quarter: 2020Q1

REPORT INFORMATION
  Report Type: Report from Study
  Country: IN (occurrence: IN)
  Receive Date: 20200106
  Receipt Date: 20200106
  Transmission Date: 20200409
  Serious: Yes (Other)
  Sender: FDA-Public Use
  Company Number: IN-MYLANLABS-2020M1000047

PATIENT
  Sex: Female

DRUGS (5)
  1. MENOTROPIN [Suspect]
     Active Substance: MENOTROPINS
     Indication: CONTROLLED OVARIAN STIMULATION
  2. HUMAN CHORIONIC GONADOTROPIN [Suspect]
     Active Substance: GONADOTROPHIN, CHORIONIC
     Indication: INFERTILITY FEMALE
     Dosage: 5000 IU
     Route: 030
  3. LETROZOLE. [Suspect]
     Active Substance: LETROZOLE
     Indication: CONTROLLED OVARIAN STIMULATION
     Dosage: STARTING FROM DAY 2 OR 3..
     Route: 048
  4. MENOTROPIN [Suspect]
     Active Substance: MENOTROPINS
     Indication: INFERTILITY FEMALE
     Dosage: 150 IU EVERY ALTERNATE DAY..
     Route: 030
  5. HUMAN CHORIONIC GONADOTROPIN [Suspect]
     Active Substance: GONADOTROPHIN, CHORIONIC
     Indication: CONTROLLED OVARIAN STIMULATION

REACTIONS (2)
  - Off label use [Unknown]
  - Ovarian hyperstimulation syndrome [Unknown]
